FAERS Safety Report 11765951 (Version 1)
Quarter: 2015Q4

REPORT INFORMATION
  Report Type: Report from Study
  Country: FR (occurrence: FR)
  Receive Date: 20151122
  Receipt Date: 20151122
  Transmission Date: 20160304
  Serious: Yes (Other)
  Sender: FDA-Public Use
  Company Number: FR-BRISTOL-MYERS SQUIBB COMPANY-BMS-2015-026688

PATIENT
  Age: 69 Year
  Sex: Male
  Weight: 64 kg

DRUGS (6)
  1. NIVOLUMAB [Suspect]
     Active Substance: NIVOLUMAB
     Indication: METASTATIC MALIGNANT MELANOMA
     Dosage: 3 MG/KG, UNK
     Route: 065
  2. NIVOLUMAB [Suspect]
     Active Substance: NIVOLUMAB
     Dosage: 165 MG, UNK
     Route: 065
     Dates: start: 20151014
  3. NIVOLUMAB [Suspect]
     Active Substance: NIVOLUMAB
     Dosage: 210 MG, UNK
     Route: 065
     Dates: start: 20150401
  4. NIVOLUMAB [Suspect]
     Active Substance: NIVOLUMAB
     Dosage: 192 MG, UNK
     Route: 065
     Dates: start: 20150916
  5. NIVOLUMAB [Suspect]
     Active Substance: NIVOLUMAB
     Dosage: 189 MG, UNK
     Route: 065
     Dates: start: 20150724
  6. NIVOLUMAB [Suspect]
     Active Substance: NIVOLUMAB
     Dosage: 198 MG, UNK
     Route: 065
     Dates: start: 20150930

REACTIONS (9)
  - Aspartate aminotransferase abnormal [Unknown]
  - Chronic obstructive pulmonary disease [Unknown]
  - Blood bilirubin increased [Recovered/Resolved]
  - Hypercreatininaemia [Unknown]
  - Alanine aminotransferase abnormal [Unknown]
  - Gamma-glutamyltransferase increased [Not Recovered/Not Resolved]
  - Hepatic pain [Unknown]
  - Blood alkaline phosphatase abnormal [Unknown]
  - Malignant neoplasm progression [Unknown]

NARRATIVE: CASE EVENT DATE: 20150324
